FAERS Safety Report 14074279 (Version 1)
Quarter: 2017Q4

REPORT INFORMATION
  Report Type: Spontaneous
  Country: SE (occurrence: SE)
  Receive Date: 20171010
  Receipt Date: 20171010
  Transmission Date: 20180321
  Serious: Yes (Disabling)
  Sender: FDA-Public Use
  Company Number: SE-PFIZER INC-2017429585

PATIENT
  Age: 49 Year
  Sex: Male

DRUGS (2)
  1. TERRA-CORTRIL POLYMYXIN B [Suspect]
     Active Substance: HYDROCORTISONE\OXYTETRACYCLINE HYDROCHLORIDE\POLYMYXIN B SULFATE
     Indication: OTITIS EXTERNA
     Dosage: 4-5 DROPS TWICE DAILY
     Dates: start: 20170825, end: 20170904
  2. DUROFERON [Suspect]
     Active Substance: FERROUS SULFATE
     Indication: ANAEMIA
     Dosage: 200 MG, DAILY
     Dates: start: 20170725, end: 20170830

REACTIONS (3)
  - Tinnitus [Recovered/Resolved with Sequelae]
  - Hypoacusis [Recovered/Resolved with Sequelae]
  - Otitis externa [Recovered/Resolved with Sequelae]

NARRATIVE: CASE EVENT DATE: 2017
